FAERS Safety Report 4824407-3 (Version None)
Quarter: 2005Q4

REPORT INFORMATION
  Report Type: 
  Country: None (occurrence: None)
  Receive Date: 20051108
  Receipt Date: 20051026
  Transmission Date: 20060501
  Serious: Yes (Other)
  Sender: FDA-Public Use
  Company Number: 2005BI015123

PATIENT
  Age: 62 Year
  Sex: Female
  Weight: 90.7194 kg

DRUGS (2)
  1. AVONEX [Suspect]
     Indication: MULTIPLE SCLEROSIS
     Dosage: 30 UG; QW; IM
     Route: 030
     Dates: start: 20050101
  2. ARANESP [Concomitant]

REACTIONS (9)
  - BRONCHITIS [None]
  - CHRONIC OBSTRUCTIVE PULMONARY DISEASE [None]
  - CONDITION AGGRAVATED [None]
  - FEELING COLD [None]
  - HAEMATOCRIT DECREASED [None]
  - HOT FLUSH [None]
  - INFLUENZA LIKE ILLNESS [None]
  - MEMORY IMPAIRMENT [None]
  - MYELODYSPLASTIC SYNDROME [None]
